FAERS Safety Report 6273288-2 (Version None)
Quarter: 2009Q3

REPORT INFORMATION
  Report Type: 
  Country: None (occurrence: None)
  Receive Date: 20090720
  Receipt Date: 20090708
  Transmission Date: 20100115
  Serious: Yes (Hospitalization, Other)
  Sender: FDA-Public Use
  Company Number: US-ROCHE-627378

PATIENT
  Sex: Male
  Weight: 78.9 kg

DRUGS (6)
  1. CAPECITABINE [Suspect]
     Indication: COLORECTAL CANCER
     Dosage: DOSE: TWO TAB (1000 MG) IN AM AND THREE TAB (1500 MG) IN PM
     Route: 048
     Dates: start: 20090103, end: 20090304
  2. CAPECITABINE [Suspect]
     Dosage: TAKEN 1500 MG IN A.M AND 1000 MG IN P.M
     Route: 048
     Dates: start: 20090327, end: 20090427
  3. ACTOS [Concomitant]
  4. LYRICA [Concomitant]
  5. LIPITOR [Concomitant]
  6. TOPROL-XL [Concomitant]

REACTIONS (6)
  - ASTHENIA [None]
  - BLOOD POTASSIUM DECREASED [None]
  - DIARRHOEA [None]
  - MALNUTRITION [None]
  - VENTRICULAR TACHYCARDIA [None]
  - WHITE BLOOD CELL COUNT DECREASED [None]
